FAERS Safety Report 8430477 (Version 2)
Quarter: 2012Q4

REPORT INFORMATION
  Report Type: 
  Country: US (occurrence: US)
  Receive Date: 20120228
  Receipt Date: 20120904
  Transmission Date: 20130627
  Serious: Yes (Other)
  Sender: FDA-Public Use
  Company Number: US-ELI_LILLY_AND_COMPANY-US200910007333

PATIENT
  Age: 40 None
  Sex: Female

DRUGS (15)
  1. ZYPREXA [Suspect]
     Indication: SCHIZOAFFECTIVE DISORDER
     Dosage: 2.5 mg, bid
     Dates: start: 20001011
  2. ZYPREXA [Suspect]
     Dosage: 3.75 mg, bid
  3. ZYPREXA [Suspect]
     Dosage: 5 mg, bid
  4. ZYPREXA [Suspect]
     Dosage: 2.5 mg, tid
  5. ZYPREXA [Suspect]
     Dosage: 5 mg, qd
  6. PROZAC [Concomitant]
     Dosage: 20 mg, qd
  7. PROZAC [Concomitant]
     Dosage: 90 mg, weekly (1/W)
  8. CLONAZEPAM [Concomitant]
     Indication: ANXIETY
     Dosage: 2.5 mg, bid
  9. CLONAZEPAM [Concomitant]
     Dosage: 0.5 mg, bid
  10. CLONAZEPAM [Concomitant]
     Dosage: 1.5 mg, tid
  11. CLONAZEPAM [Concomitant]
     Dosage: 2 mg, qd
  12. GEODON [Concomitant]
     Indication: SCHIZOAFFECTIVE DISORDER
     Dosage: 120 mg, qd
  13. GEODON [Concomitant]
     Dosage: 200 mg, qd
  14. HYDROCHLOROTHIAZIDE [Concomitant]
  15. BENZATROPINE [Concomitant]

REACTIONS (29)
  - Pancreatitis viral [Unknown]
  - Pulmonary hypertension [Unknown]
  - Coronary artery disease [Unknown]
  - Upper respiratory tract infection [Unknown]
  - Conjunctivitis [Unknown]
  - Tinea cruris [Unknown]
  - Paronychia [Unknown]
  - Furuncle [Unknown]
  - Bacterial infection [Unknown]
  - Bacterial infection [Unknown]
  - Gastroenteritis [Unknown]
  - Nasopharyngitis [Unknown]
  - Palpitations [Unknown]
  - Cellulitis [Unknown]
  - Gastroenteritis [Unknown]
  - Localised infection [Recovered/Resolved]
  - Onychomycosis [Recovered/Resolved]
  - Regurgitation [Unknown]
  - Cystitis [Unknown]
  - Gamma-glutamyltransferase increased [Unknown]
  - Hypertension [Unknown]
  - Neutrophil count decreased [Unknown]
  - White blood cell count decreased [Unknown]
  - Alanine aminotransferase increased [Recovering/Resolving]
  - Aspartate aminotransferase increased [Recovering/Resolving]
  - Weight increased [Recovered/Resolved]
  - Type 2 diabetes mellitus [Unknown]
  - Blood triglycerides increased [Unknown]
  - Wrong technique in drug usage process [Unknown]
